FAERS Safety Report 16126458 (Version 1)
Quarter: 2019Q1

REPORT INFORMATION
  Report Type: Spontaneous
  Country: US (occurrence: US)
  Receive Date: 20190222
  Receipt Date: 20190222
  Transmission Date: 20190418
  Serious: Yes (Disabling, Other)
  Sender: FDA-Public Use
  Company Number: None

PATIENT
  Age: 55 Year
  Sex: Female

DRUGS (1)
  1. SPIRONOLACTONE 50 MG TAB GENERIC FOR ALDACTONE [Suspect]
     Active Substance: SPIRONOLACTONE
     Indication: HYPERTENSION
     Dosage: ?          QUANTITY:1 DF DOSAGE FORM;?
     Route: 048
     Dates: start: 20181030

REACTIONS (18)
  - Pruritus [None]
  - Gingival pain [None]
  - Hypoaesthesia [None]
  - Paraesthesia [None]
  - Paraesthesia oral [None]
  - Lip swelling [None]
  - Swollen tongue [None]
  - Contusion [None]
  - Gingival bleeding [None]
  - Oral pain [None]
  - Loss of consciousness [None]
  - Swelling of eyelid [None]
  - Sexual dysfunction [None]
  - Sluggishness [None]
  - Glossodynia [None]
  - Dyspepsia [None]
  - Swelling face [None]
  - Nervousness [None]

NARRATIVE: CASE EVENT DATE: 20181211
